FAERS Safety Report 4902023-2 (Version None)
Quarter: 2006Q1

REPORT INFORMATION
  Report Type: 
  Country: None (occurrence: None)
  Receive Date: 20060201
  Receipt Date: 20060201
  Transmission Date: 20060701
  Serious: No
  Sender: FDA-Public Use
  Company Number: None

PATIENT
  Age: 47 Year
  Sex: Female
  Weight: 50.3493 kg

DRUGS (8)
  1. LYRICA [Suspect]
     Indication: LUMBAR RADICULOPATHY
     Dosage: 75MG BID PO
     Route: 048
     Dates: start: 20051111
  2. KEPPRA [Concomitant]
  3. LORTAB [Concomitant]
  4. ESTRATEST [Concomitant]
  5. SYNTHROID [Concomitant]
  6. PROZAC [Concomitant]
  7. PROTONIX [Concomitant]
  8. VALTREX [Concomitant]

REACTIONS (1)
  - OEDEMA PERIPHERAL [None]
